FAERS Safety Report 7305325-8 (Version None)
Quarter: 2011Q1

REPORT INFORMATION
  Report Type: 
  Country: None (occurrence: None)
  Receive Date: 20110222
  Receipt Date: 20110208
  Transmission Date: 20110831
  Serious: Yes (Hospitalization, Other)
  Sender: FDA-Public Use
  Company Number: PHHY2011AU09969

PATIENT
  Sex: Male

DRUGS (6)
  1. CLOZARIL [Suspect]
     Dosage: 650 MG, QD
  2. SERETIDE [Concomitant]
     Dosage: TWICE DAILY
  3. CLOZARIL [Suspect]
     Dosage: 800 MG, QD
  4. CLOZARIL [Suspect]
     Dosage: 750 MG, QD
  5. ARIPIPRAZOLE [Concomitant]
     Dosage: 20 MG, QD
  6. CITALOPRAM [Concomitant]
     Dosage: 20 MG, QD

REACTIONS (5)
  - SOMNOLENCE [None]
  - SEPSIS [None]
  - TOXICITY TO VARIOUS AGENTS [None]
  - SALIVARY HYPERSECRETION [None]
  - ANTIPSYCHOTIC DRUG LEVEL INCREASED [None]
